FAERS Safety Report 9456663 (Version 1)
Quarter: 2013Q3

REPORT INFORMATION
  Report Type: Spontaneous
  Country: US (occurrence: US)
  Receive Date: 20130813
  Receipt Date: 20130813
  Transmission Date: 20140515
  Serious: No
  Sender: FDA-Public Use
  Company Number: US-009507513-1308USA001904

PATIENT
  Sex: Male

DRUGS (3)
  1. PROVENTIL [Suspect]
     Indication: DYSPNOEA
     Dosage: UNK, PRN
     Route: 055
     Dates: start: 201305
  2. ALBUTEROL [Concomitant]
  3. CORTICOSTEROIDS (UNSPECIFIED) [Concomitant]

REACTIONS (3)
  - Dyspnoea [Unknown]
  - Drug dose omission [Unknown]
  - Product container issue [Unknown]
